FAERS Safety Report 4554818-5 (Version None)
Quarter: 2005Q1

REPORT INFORMATION
  Report Type: 
  Country: None (occurrence: None)
  Receive Date: 20041227
  Receipt Date: 20040712
  Transmission Date: 20050727
  Serious: Yes (Other)
  Sender: FDA-Public Use
  Company Number: 2004-0007255

PATIENT
  Age: 50 Year
  Sex: Female

DRUGS (5)
  1. VIREAD [Suspect]
     Indication: HIV INFECTION
     Dosage: 300 MG, ORAL
     Route: 048
     Dates: start: 20030401
  2. VIRAMUNE [Concomitant]
  3. EPIVIR [Concomitant]
  4. METHADONE (METHADONE) [Concomitant]
  5. XANAX [Concomitant]

REACTIONS (1)
  - CREATININE RENAL CLEARANCE DECREASED [None]
